FAERS Safety Report 5565403-0 (Version None)
Quarter: 2007Q4

REPORT INFORMATION
  Report Type: 
  Country: None (occurrence: None)
  Receive Date: 20071213
  Receipt Date: 20071203
  Transmission Date: 20080405
  Serious: Yes (Death, Hospitalization, Other)
  Sender: FDA-Public Use
  Company Number: 2002-09-1356

PATIENT
  Age: 57 Year
  Sex: Female

DRUGS (5)
  1. INTRON A [Suspect]
     Indication: MALIGNANT MELANOMA STAGE IV
     Dosage: 1 MIU;BID;SC;1 MIU;BID;SC
     Route: 058
     Dates: start: 20020724, end: 20020821
  2. INTRON A [Suspect]
     Indication: MALIGNANT MELANOMA STAGE IV
     Dosage: 1 MIU;BID;SC;1 MIU;BID;SC
     Route: 058
     Dates: start: 20020823, end: 20020824
  3. THALIDOMIDE [Suspect]
     Indication: MALIGNANT MELANOMA STAGE IV
     Dosage: 200 MG;HS;PO; 300 MG;HS;PO;40 MG;HS;PO
     Route: 048
     Dates: start: 20020724, end: 20020730
  4. THALIDOMIDE [Suspect]
     Indication: MALIGNANT MELANOMA STAGE IV
     Dosage: 200 MG;HS;PO; 300 MG;HS;PO;40 MG;HS;PO
     Route: 048
     Dates: start: 20020807, end: 20020821
  5. THALIDOMIDE [Suspect]
     Indication: MALIGNANT MELANOMA STAGE IV
     Dosage: 200 MG;HS;PO; 300 MG;HS;PO;40 MG;HS;PO
     Route: 048
     Dates: start: 20020731, end: 20050806

REACTIONS (5)
  - ATRIAL FIBRILLATION [None]
  - DEHYDRATION [None]
  - DRUG INTERACTION [None]
  - DRUG TOXICITY [None]
  - SUDDEN DEATH [None]
